FAERS Safety Report 6038611-2 (Version None)
Quarter: 2009Q1

REPORT INFORMATION
  Report Type: 
  Country: None (occurrence: None)
  Receive Date: 20090114
  Receipt Date: 20090114
  Transmission Date: 20090719
  Serious: Yes (Hospitalization)
  Sender: FDA-Public Use
  Company Number: None

PATIENT
  Sex: Male
  Weight: 90 kg

DRUGS (6)
  1. METHOTREXATE [Suspect]
     Dosage: 7.42 G
  2. RITUXIMAB (MOAB C2B8 ANTI CD20, CHIMERIC) [Suspect]
     Dosage: 800 MG
  3. TEMOZOLOMIDE [Suspect]
     Dosage: 210 MG
  4. DEXAMETHASONE [Concomitant]
  5. LEUCOVORIN CALCIUM [Concomitant]
  6. VANCOMYCIN HYDROCHLORIDE [Concomitant]

REACTIONS (5)
  - BLOOD CULTURE POSITIVE [None]
  - PLATELET COUNT DECREASED [None]
  - PYREXIA [None]
  - STAPHYLOCOCCAL INFECTION [None]
  - WHITE BLOOD CELL COUNT DECREASED [None]
